FAERS Safety Report 20108465 (Version 1)
Quarter: 2021Q4

REPORT INFORMATION
  Report Type: Spontaneous
  Country: US (occurrence: US)
  Receive Date: 20211124
  Receipt Date: 20211124
  Transmission Date: 20220304
  Serious: No
  Sender: FDA-Public Use
  Company Number: US-PERRIGO-21US011684

PATIENT
  Sex: Male
  Weight: 81.179 kg

DRUGS (1)
  1. POLYETHYLENE GLYCOL 3350 [Suspect]
     Active Substance: POLYETHYLENE GLYCOL 3350
     Indication: Constipation prophylaxis
     Dosage: 1 TEASPOON, NIGHTLY
     Route: 048
     Dates: end: 20210819

REACTIONS (2)
  - Off label use [Recovered/Resolved]
  - Incorrect product administration duration [Recovered/Resolved]
